FAERS Safety Report 7966252-6 (Version None)
Quarter: 2011Q4

REPORT INFORMATION
  Report Type: 
  Country: None (occurrence: None)
  Receive Date: 20111208
  Receipt Date: 20111202
  Transmission Date: 20120403
  Serious: Yes (Other)
  Sender: FDA-Public Use
  Company Number: PHHY2011US106789

PATIENT
  Age: 63 Year
  Sex: Female

DRUGS (2)
  1. ZOLEDRONIC ACID [Suspect]
     Indication: BREAST CANCER
  2. PAMIDRONATE DISODIUM [Suspect]
     Indication: BREAST CANCER

REACTIONS (5)
  - BONE LESION [None]
  - OSTEONECROSIS OF JAW [None]
  - OSTEOSCLEROSIS [None]
  - PRIMARY SEQUESTRUM [None]
  - BONE DENSITY DECREASED [None]
